FAERS Safety Report 9353327 (Version 1)
Quarter: 2013Q2

REPORT INFORMATION
  Report Type: Spontaneous
  Country: US (occurrence: None)
  Receive Date: 20130617
  Receipt Date: 20130617
  Transmission Date: 20140414
  Serious: No
  Sender: FDA-Public Use
  Company Number: None

PATIENT
  Age: 46 Year
  Sex: Male
  Weight: 96.8 kg

DRUGS (2)
  1. ATORVASTATIN [Suspect]
     Indication: PAIN
     Dosage: 10 MG  EVERY DAY  PO
     Route: 048
     Dates: start: 20130207, end: 20130530
  2. ATORVASTATIN [Suspect]
     Indication: MYALGIA
     Dosage: 10 MG  EVERY DAY  PO
     Route: 048
     Dates: start: 20130207, end: 20130530

REACTIONS (1)
  - Myalgia [None]
